FAERS Safety Report 15949846 (Version 4)
Quarter: 2021Q3

REPORT INFORMATION
  Report Type: Spontaneous
  Country: US (occurrence: US)
  Receive Date: 20190212
  Receipt Date: 20210803
  Transmission Date: 20211014
  Serious: Yes (Other)
  Sender: FDA-Public Use
  Company Number: PHEH2018US055998

PATIENT
  Sex: Male
  Weight: 102.04 kg

DRUGS (1)
  1. TASIGNA [Suspect]
     Active Substance: NILOTINIB
     Indication: CHRONIC MYELOID LEUKAEMIA
     Dosage: 150 MG, Q12H
     Route: 048
     Dates: start: 20111103, end: 20180416

REACTIONS (11)
  - Arteriosclerosis [Unknown]
  - Emotional distress [Unknown]
  - Injury [Unknown]
  - Poor peripheral circulation [Unknown]
  - Enthesopathy [Unknown]
  - Cyst [Unknown]
  - Anxiety [Unknown]
  - Mass [Unknown]
  - Pain [Unknown]
  - Nail necrosis [Unknown]
  - Bursitis [Unknown]
